FAERS Safety Report 4721370-0 (Version None)
Quarter: 2005Q3

REPORT INFORMATION
  Report Type: 
  Country: None (occurrence: None)
  Receive Date: 20050721
  Receipt Date: 20040723
  Transmission Date: 20060218
  Serious: No
  Sender: FDA-Public Use
  Company Number: US-BRISTOL-MYERS SQUIBB COMPANY-12650453

PATIENT
  Age: 78 Year
  Sex: Female
  Weight: 66 kg

DRUGS (4)
  1. COUMADIN [Suspect]
     Indication: ATRIAL FIBRILLATION
     Dosage: LOT: UP826A EXP: NOV-06(1MG) LOT: UL723B EXP: AUG-06(2MG)
     Dates: start: 20040101
  2. DIGOXIN [Concomitant]
     Dosage: DOSE LOWERED FROM 0.25MG
     Dates: start: 20040101
  3. ATENOLOL [Concomitant]
     Dates: start: 20040101
  4. AVALIDE [Concomitant]
     Dosage: 1/2 TAB IN THE AM AND PM
     Dates: start: 20040101

REACTIONS (5)
  - CONTUSION [None]
  - OEDEMA PERIPHERAL [None]
  - RECTAL HAEMORRHAGE [None]
  - SKIN DISCOLOURATION [None]
  - VASODILATATION [None]
